FAERS Safety Report 20973012 (Version 1)
Quarter: 2022Q2

REPORT INFORMATION
  Report Type: Spontaneous
  Country: GB (occurrence: GB)
  Receive Date: 20220617
  Receipt Date: 20220617
  Transmission Date: 20220720
  Serious: Yes (Other)
  Sender: FDA-Public Use
  Company Number: None

PATIENT
  Age: 56 Year
  Sex: Male
  Weight: 102 kg

DRUGS (6)
  1. DOXYCYCLINE [Suspect]
     Active Substance: DOXYCYCLINE
     Indication: Ill-defined disorder
     Route: 065
     Dates: start: 20220606
  2. AMOXICILLIN [Concomitant]
     Active Substance: AMOXICILLIN
     Indication: Ill-defined disorder
     Dosage: 3 DOSAGE FORMS DAILY; ONE CAPSULE TO BE TAKEN THREE TIMES A DAY FOR 7...
     Route: 065
     Dates: start: 20220606
  3. BECLOMETHASONE DIPROPIONATE [Concomitant]
     Active Substance: BECLOMETHASONE DIPROPIONATE
     Indication: Ill-defined disorder
     Dosage: 4 DOSAGE FORMS DAILY; TWO PUFFS TO BE INHALED TWICE DAILY. (PLEASE RE...
     Route: 055
     Dates: start: 20220531
  4. PENICILLIN V [Concomitant]
     Active Substance: PENICILLIN V
     Indication: Ill-defined disorder
     Dosage: 8 DOSAGE FORMS DAILY; TWO TABLETS TO BE TAKEN FOUR TIMES A DAY, DURATION: 5 DAYS
     Dates: start: 20220516, end: 20220521
  5. ALBUTEROL [Concomitant]
     Active Substance: ALBUTEROL
     Indication: Ill-defined disorder
     Dosage: INHALE 2 DOSES 4 HOURLY AS NEEDED
     Route: 055
     Dates: start: 20220530
  6. DOXYCYCLINE [Concomitant]
     Active Substance: DOXYCYCLINE
     Indication: Ill-defined disorder
     Dosage: TWO CAPSULES TO BE TAKEN IMMEDIATELY THEN ONE...
     Route: 065
     Dates: start: 20220531

REACTIONS (2)
  - Nausea [Recovered/Resolved]
  - Abnormal sleep-related event [Recovering/Resolving]

NARRATIVE: CASE EVENT DATE: 20220606
